FAERS Safety Report 9416340 (Version 2)
Quarter: 2013Q3

REPORT INFORMATION
  Report Type: Report from Study
  Country: UY (occurrence: UY)
  Receive Date: 20130724
  Receipt Date: 20130728
  Transmission Date: 20140515
  Serious: Yes (Hospitalization)
  Sender: FDA-Public Use
  Company Number: UY-ROCHE-1240061

PATIENT
  Sex: Female

DRUGS (1)
  1. XELODA [Suspect]
     Indication: DUODENAL NEOPLASM
     Dosage: 1500 MG AM AND 1000 MG PM
     Route: 048
     Dates: start: 20130603

REACTIONS (3)
  - Diarrhoea [Unknown]
  - Paraesthesia [Unknown]
  - Foot amputation [Unknown]
